FAERS Safety Report 16112348 (Version 1)
Quarter: 2019Q2

REPORT INFORMATION
  Report Type: Spontaneous
  Country: CA (occurrence: CA)
  Receive Date: 20190324
  Receipt Date: 20190324
  Transmission Date: 20190711
  Serious: Yes (Hospitalization)
  Sender: FDA-Public Use
  Company Number: None

PATIENT
  Age: 30 Year
  Sex: Female
  Weight: 49.5 kg

DRUGS (3)
  1. PLAN B [Suspect]
     Active Substance: LEVONORGESTREL
     Indication: CONTRACEPTION
     Dates: start: 20190213
  2. MAGNESIUM [Concomitant]
     Active Substance: MAGNESIUM
  3. VITAMIN C [Concomitant]
     Active Substance: ASCORBIC ACID

REACTIONS (7)
  - Panic attack [None]
  - Nightmare [None]
  - Headache [None]
  - Fear [None]
  - Amenorrhoea [None]
  - Palpitations [None]
  - Anxiety [None]

NARRATIVE: CASE EVENT DATE: 20190213
